FAERS Safety Report 21472358 (Version 1)
Quarter: 2022Q4

REPORT INFORMATION
  Report Type: Spontaneous
  Country: US (occurrence: US)
  Receive Date: 20221018
  Receipt Date: 20221018
  Transmission Date: 20230112
  Serious: No
  Sender: FDA-Public Use
  Company Number: US-GALDERMA-US2022011854

PATIENT

DRUGS (21)
  1. PROACTIV MD ADAPALENE ACNE TREATMENT [Suspect]
     Active Substance: ADAPALENE
     Indication: Acne
     Dosage: 1 DOSAGE FORM, QD
     Route: 061
  2. PROACTIV MD ADAPALENE ACNE TREATMENT [Suspect]
     Active Substance: ADAPALENE
     Indication: Scar
  3. PROACTIV MD ADAPALENE ACNE TREATMENT [Suspect]
     Active Substance: ADAPALENE
     Indication: Rash macular
  4. PROACTIV CLEAR SKIN SPF 30 [Concomitant]
     Active Substance: AVOBENZONE\OCTISALATE\OCTOCRYLENE
     Indication: Acne
     Dosage: 1 DOSAGE FORM, QD
     Route: 061
  5. PROACTIV CLEAR SKIN SPF 30 [Concomitant]
     Active Substance: AVOBENZONE\OCTISALATE\OCTOCRYLENE
     Indication: Scar
  6. PROACTIV CLEAR SKIN SPF 30 [Concomitant]
     Active Substance: AVOBENZONE\OCTISALATE\OCTOCRYLENE
     Indication: Rash macular
  7. Proactiv MD Ultra Gentle Cleanser [Concomitant]
     Indication: Acne
     Dosage: 1 DOSAGE FORM, QD
     Route: 061
  8. Proactiv MD Ultra Gentle Cleanser [Concomitant]
     Indication: Scar
  9. Proactiv MD Ultra Gentle Cleanser [Concomitant]
     Indication: Rash macular
  10. Proactiv MD Ultra Hydrating Moisturizer [Concomitant]
     Indication: Acne
     Dosage: 1 DOSAGE FORM, QD
     Route: 061
  11. Proactiv MD Ultra Hydrating Moisturizer [Concomitant]
     Indication: Scar
  12. Proactiv MD Ultra Hydrating Moisturizer [Concomitant]
     Indication: Rash macular
  13. Proactiv Post Acne Dark Mark Relief [Concomitant]
     Indication: Acne
     Dosage: 1 DOSAGE FORM, QD
     Route: 061
  14. Proactiv Post Acne Dark Mark Relief [Concomitant]
     Indication: Scar
  15. Proactiv Post Acne Dark Mark Relief [Concomitant]
     Indication: Rash macular
  16. Proactiv Amazonian Clay Mask [Concomitant]
     Indication: Acne
     Dosage: 1 DOSAGE FORM, QD
     Route: 061
  17. Proactiv Amazonian Clay Mask [Concomitant]
     Indication: Scar
  18. Proactiv Amazonian Clay Mask [Concomitant]
     Indication: Rash macular
  19. Proactiv Post Acne Scar Gel [Concomitant]
     Indication: Acne
     Dosage: 1 DOSAGE FORM, QD
     Route: 061
  20. Proactiv Post Acne Scar Gel [Concomitant]
     Indication: Scar
  21. Proactiv Post Acne Scar Gel [Concomitant]
     Indication: Rash macular

REACTIONS (1)
  - Drug ineffective [Unknown]
